FAERS Safety Report 8395900-4 (Version None)
Quarter: 2012Q2

REPORT INFORMATION
  Report Type: 
  Country: None (occurrence: None)
  Receive Date: 20120530
  Receipt Date: 20120523
  Transmission Date: 20120825
  Serious: Yes (Hospitalization)
  Sender: FDA-Public Use
  Company Number: US-GLAXOSMITHKLINE-A0976155A

PATIENT
  Age: 84 Year
  Sex: Male
  Weight: 68.2 kg

DRUGS (7)
  1. OFATUMUMAB [Suspect]
     Indication: CHRONIC LYMPHOCYTIC LEUKAEMIA
     Dosage: 2000MG WEEKLY
     Route: 042
     Dates: start: 20120222, end: 20120403
  2. ALLOPURINOL [Concomitant]
     Indication: ATRIAL FIBRILLATION
     Dosage: 300MGD PER DAY
     Route: 048
     Dates: start: 20110909
  3. DIGOXIN [Concomitant]
     Indication: ATRIAL FIBRILLATION
     Dosage: .125MGD PER DAY
     Route: 048
  4. FUROSEMIDE [Concomitant]
     Indication: RENAL FAILURE
     Dosage: 40MG TWICE PER DAY
     Route: 048
     Dates: start: 20111201
  5. CARVEDILOL [Concomitant]
     Indication: ATRIAL FIBRILLATION
     Dosage: 25MG TWICE PER DAY
     Route: 048
  6. NIACIN [Concomitant]
     Indication: VITAMIN SUPPLEMENTATION
     Dosage: 750MG TWICE PER DAY
     Route: 048
  7. POTASSIUM CHLORIDE [Concomitant]
     Indication: MEDICAL DIET
     Dosage: 40MG TWICE PER DAY
     Route: 048

REACTIONS (14)
  - DIABETES MELLITUS [None]
  - EATING DISORDER [None]
  - CORONARY ARTERY DISEASE [None]
  - HYPERCHOLESTEROLAEMIA [None]
  - HYPOTHYROIDISM [None]
  - ASTHENIA [None]
  - INFECTION [None]
  - BLOOD SODIUM INCREASED [None]
  - BODY TEMPERATURE INCREASED [None]
  - BLOOD CALCIUM INCREASED [None]
  - SKIN WARM [None]
  - FLUSHING [None]
  - BLOOD PRESSURE DECREASED [None]
  - CONFUSIONAL STATE [None]
